FAERS Safety Report 24160249 (Version 1)
Quarter: 2024Q3

REPORT INFORMATION
  Report Type: Spontaneous
  Country: US (occurrence: US)
  Receive Date: 20240801
  Receipt Date: 20240801
  Transmission Date: 20241017
  Serious: No
  Sender: AILEX PHARMACEUTICALS
  Company Number: AP-2024-US-6009

PATIENT
  Age: 46 Year
  Sex: Female

DRUGS (1)
  1. CROMOLYN SODIUM [Suspect]
     Active Substance: CROMOLYN SODIUM
     Indication: Mast cell activation syndrome
     Dosage: 2 ML
     Route: 048
     Dates: start: 202311, end: 20240707

REACTIONS (2)
  - Intentional underdose [Unknown]
  - Product use issue [Unknown]

NARRATIVE: CASE EVENT DATE: 20240707
